FAERS Safety Report 12314839 (Version 1)
Quarter: 2016Q2

REPORT INFORMATION
  Report Type: Spontaneous
  Country: US (occurrence: US)
  Receive Date: 20160428
  Receipt Date: 20160428
  Transmission Date: 20160815
  Serious: No
  Sender: FDA-Public Use
  Company Number: US-BAYER-2016-077598

PATIENT
  Age: 82 Year
  Sex: Male
  Weight: 79.37 kg

DRUGS (1)
  1. CLARITIN [Suspect]
     Active Substance: LORATADINE
     Indication: SEASONAL ALLERGY
     Dosage: UNK UNK, QD
     Route: 048
     Dates: start: 201603, end: 20160419

REACTIONS (2)
  - Rhinorrhoea [None]
  - Lacrimation increased [None]

NARRATIVE: CASE EVENT DATE: 20160419
